FAERS Safety Report 7998807-7 (Version None)
Quarter: 2011Q4

REPORT INFORMATION
  Report Type: 
  Country: None (occurrence: None)
  Receive Date: 20111221
  Receipt Date: 20111220
  Transmission Date: 20120403
  Serious: Yes (Other)
  Sender: FDA-Public Use
  Company Number: US-VIIV HEALTHCARE LIMITED-A0861569A

PATIENT
  Age: 26 Year
  Sex: Female

DRUGS (3)
  1. COMBIVIR [Suspect]
     Indication: HIV INFECTION
     Dosage: 2TAB PER DAY
     Route: 048
     Dates: start: 20100518
  2. ATRIPLA [Suspect]
     Indication: HIV INFECTION
     Dosage: 1TAB PER DAY
     Route: 048
     Dates: end: 20100518
  3. REYATAZ [Suspect]
     Indication: HIV INFECTION
     Dosage: 400MGD PER DAY
     Route: 048
     Dates: start: 20100518

REACTIONS (4)
  - INTRA-UTERINE DEATH [None]
  - LIVE BIRTH [None]
  - MATERNAL EXPOSURE DURING PREGNANCY [None]
  - PRENATAL SCREENING TEST ABNORMAL [None]
